FAERS Safety Report 24290310 (Version 2)
Quarter: 2024Q4

REPORT INFORMATION
  Report Type: Spontaneous
  Country: US (occurrence: US)
  Receive Date: 20240906
  Receipt Date: 20241010
  Transmission Date: 20250114
  Serious: No
  Sender: LEO PHARM
  Company Number: US-LEO Pharma-373285

PATIENT
  Age: 88 Year
  Sex: Male

DRUGS (2)
  1. ADBRY [Suspect]
     Active Substance: TRALOKINUMAB-LDRM
     Indication: Neurodermatitis
     Dosage: TREATMENT REPORTED AS ONGOING
     Route: 058
     Dates: start: 202312
  2. ADBRY [Suspect]
     Active Substance: TRALOKINUMAB-LDRM
     Indication: Dermatitis allergic
     Dosage: TREATMENT REPORTED AS ONGOING
     Route: 058
     Dates: start: 202312

REACTIONS (1)
  - Rash [Recovering/Resolving]
